FAERS Safety Report 7764603-9 (Version None)
Quarter: 2011Q3

REPORT INFORMATION
  Report Type: 
  Country: None (occurrence: None)
  Receive Date: 20110921
  Receipt Date: 20110906
  Transmission Date: 20111222
  Serious: Yes (Other)
  Sender: FDA-Public Use
  Company Number: PHEH2011US03353

PATIENT
  Age: 52 Year

DRUGS (4)
  1. EXFORGE HCT [Suspect]
     Dosage: 1 DF(VALSARTAN 160, AMLODIPINE 5, HYDROCHLOROTHIAZIDE 12.5), QD
  2. SPIRIVA [Concomitant]
  3. BYSTOLIC [Concomitant]
  4. VICODIN [Concomitant]

REACTIONS (4)
  - LOSS OF CONSCIOUSNESS [None]
  - GAIT DISTURBANCE [None]
  - HYPOTENSION [None]
  - ROAD TRAFFIC ACCIDENT [None]
